FAERS Safety Report 18946246 (Version 1)
Quarter: 2021Q1

REPORT INFORMATION
  Report Type: Spontaneous
  Country: DE (occurrence: DE)
  Receive Date: 20210226
  Receipt Date: 20210226
  Transmission Date: 20210420
  Serious: Yes (Other)
  Sender: FDA-Public Use
  Company Number: NVSC2021DE038603

PATIENT
  Sex: Male

DRUGS (2)
  1. AZOPT [Suspect]
     Active Substance: BRINZOLAMIDE
     Indication: PRODUCT USED FOR UNKNOWN INDICATION
     Dosage: 2 DF, QD (RECHTES AUGE 2MAL TAGLICH)
     Route: 065
     Dates: start: 2013
  2. LATANOPROST/TIMOLOL [Concomitant]
     Active Substance: LATANOPROST\TIMOLOL
     Indication: PRODUCT USED FOR UNKNOWN INDICATION
     Dosage: UNK, BEIDE AUGEN
     Route: 065

REACTIONS (1)
  - Optic nerve injury [Unknown]

NARRATIVE: CASE EVENT DATE: 202012
